FAERS Safety Report 9403297 (Version 1)
Quarter: 2013Q3

REPORT INFORMATION
  Report Type: Spontaneous
  Country: US (occurrence: US)
  Receive Date: 20130716
  Receipt Date: 20130716
  Transmission Date: 20140515
  Serious: Yes (Death, Hospitalization, Other)
  Sender: FDA-Public Use
  Company Number: US-PFIZER INC-2013207538

PATIENT
  Age: 83 Year
  Sex: Female
  Weight: 45.35 kg

DRUGS (3)
  1. LYRICA [Suspect]
     Indication: FIBROMYALGIA
     Dosage: 125 MG, 1X/DAY AT NIGHT
  2. OXYCODONE HYDROCHLORIDE [Suspect]
     Indication: FIBROMYALGIA
     Dosage: 80 MG, 3X/DAY
  3. OXYCODONE HYDROCHLORIDE [Suspect]
     Dosage: 10 MG, 1X/DAY

REACTIONS (3)
  - Cardiac failure congestive [Fatal]
  - Renal failure [Unknown]
  - Colitis [Unknown]
